FAERS Safety Report 12740579 (Version 1)
Quarter: 2016Q3

REPORT INFORMATION
  Report Type: Report from Study
  Country: ES (occurrence: ES)
  Receive Date: 20160913
  Receipt Date: 20160913
  Transmission Date: 20161109
  Serious: Yes (Other)
  Sender: FDA-Public Use
  Company Number: ES-BAXTER-2016BAX046217

PATIENT
  Age: 70 Year

DRUGS (18)
  1. RITUXIMAB [Suspect]
     Active Substance: RITUXIMAB
     Route: 065
     Dates: start: 20111228, end: 20111230
  2. FLUDARABINE [Suspect]
     Active Substance: FLUDARABINE PHOSPHATE
     Dosage: DOSE DELAY AND REDUCE DUE TO HEMATOLOGIC TOXICITY
     Route: 065
     Dates: start: 20120509, end: 20120511
  3. FLUDARABINE [Suspect]
     Active Substance: FLUDARABINE PHOSPHATE
     Route: 065
     Dates: start: 20111228, end: 20111230
  4. FLUDARABINE [Suspect]
     Active Substance: FLUDARABINE PHOSPHATE
     Dosage: DOSE REDUCE DUE TO HEMATOLOGIC TOXICITY
     Route: 065
     Dates: start: 20120222, end: 20120224
  5. GENOXAL [Suspect]
     Active Substance: CYCLOPHOSPHAMIDE
     Indication: CHRONIC LYMPHOCYTIC LEUKAEMIA
     Route: 065
     Dates: start: 20111129, end: 20111201
  6. FLUDARABINE [Suspect]
     Active Substance: FLUDARABINE PHOSPHATE
     Dosage: DOSE DELAY AND REDUCE DUE TO HEMATOLOGIC TOXICITY
     Route: 065
     Dates: start: 20120402, end: 20120404
  7. GENOXAL [Suspect]
     Active Substance: CYCLOPHOSPHAMIDE
     Dosage: DOSE DELAY DUE TO HEMATOLOGIC TOXICITY
     Route: 065
     Dates: start: 20160402, end: 20160404
  8. FLUDARABINE [Suspect]
     Active Substance: FLUDARABINE PHOSPHATE
     Indication: CHRONIC LYMPHOCYTIC LEUKAEMIA
     Route: 065
     Dates: start: 20111129, end: 20111201
  9. FLUDARABINE [Suspect]
     Active Substance: FLUDARABINE PHOSPHATE
     Route: 065
     Dates: start: 20120125, end: 20120127
  10. GENOXAL [Suspect]
     Active Substance: CYCLOPHOSPHAMIDE
     Route: 065
     Dates: start: 20111228, end: 20111230
  11. GENOXAL [Suspect]
     Active Substance: CYCLOPHOSPHAMIDE
     Dosage: DOSE REDUCED DUE TO HEMATOLOGIC TOXICITY
     Route: 065
     Dates: start: 20120222, end: 20120224
  12. RITUXIMAB [Suspect]
     Active Substance: RITUXIMAB
     Dosage: DELAY DUE TO HEMATOLOGIC TOXICITY
     Route: 065
     Dates: start: 20120402, end: 20120404
  13. GENOXAL [Suspect]
     Active Substance: CYCLOPHOSPHAMIDE
     Route: 065
     Dates: start: 20120125, end: 20120127
  14. GENOXAL [Suspect]
     Active Substance: CYCLOPHOSPHAMIDE
     Dosage: DOSE DELAY DUE TO HEMATOLOGIC TOXICITY
     Route: 065
     Dates: start: 20120509, end: 20120511
  15. RITUXIMAB [Suspect]
     Active Substance: RITUXIMAB
     Indication: CHRONIC LYMPHOCYTIC LEUKAEMIA
     Route: 065
     Dates: start: 20111129, end: 20111201
  16. RITUXIMAB [Suspect]
     Active Substance: RITUXIMAB
     Route: 065
     Dates: start: 20120125, end: 20120127
  17. RITUXIMAB [Suspect]
     Active Substance: RITUXIMAB
     Route: 065
     Dates: start: 20120222, end: 20120224
  18. RITUXIMAB [Suspect]
     Active Substance: RITUXIMAB
     Dosage: DELAY DUE TO HEMATOLOGIC TOXICITY
     Route: 065
     Dates: start: 20120509, end: 20120511

REACTIONS (3)
  - Neutrophil count decreased [Recovered/Resolved]
  - Neutrophil count decreased [Recovered/Resolved]
  - Haematotoxicity [Unknown]

NARRATIVE: CASE EVENT DATE: 20120502
